FAERS Safety Report 11236192 (Version 3)
Quarter: 2015Q3

REPORT INFORMATION
  Report Type: Spontaneous
  Country: US (occurrence: US)
  Receive Date: 20150702
  Receipt Date: 20150925
  Transmission Date: 20151125
  Serious: Yes (Other)
  Sender: FDA-Public Use
  Company Number: US-GE HEALTHCARE MEDICAL DIAGNOSTICS-OMPQ-PR-1506S-1029

PATIENT
  Age: 75 Year
  Sex: Male

DRUGS (2)
  1. OMNIPAQUE [Suspect]
     Active Substance: IOHEXOL
     Indication: DIAGNOSTIC PROCEDURE
  2. OMNIPAQUE [Suspect]
     Active Substance: IOHEXOL
     Indication: NODULE
     Route: 042
     Dates: start: 20150630, end: 20150630

REACTIONS (2)
  - Feeling hot [Unknown]
  - Urticaria [Unknown]

NARRATIVE: CASE EVENT DATE: 20150630
